FAERS Safety Report 7524372-4 (Version None)
Quarter: 2011Q2

REPORT INFORMATION
  Report Type: 
  Country: None (occurrence: None)
  Receive Date: 20110606
  Receipt Date: 20090429
  Transmission Date: 20111010
  Serious: No
  Sender: FDA-Public Use
  Company Number: 2009BI013130

PATIENT
  Age: 24 Year
  Sex: Female

DRUGS (1)
  1. TYSABRI [Suspect]
     Indication: MULTIPLE SCLEROSIS
     Route: 042
     Dates: start: 20090326

REACTIONS (4)
  - TREMOR [None]
  - BALANCE DISORDER [None]
  - GAIT DISTURBANCE [None]
  - MALAISE [None]
